FAERS Safety Report 5844258-0 (Version None)
Quarter: 2008Q3

REPORT INFORMATION
  Report Type: 
  Country: None (occurrence: None)
  Receive Date: 20080813
  Receipt Date: 20080805
  Transmission Date: 20090109
  Serious: Yes (Other)
  Sender: FDA-Public Use
  Company Number: FR-PFIZER INC-2008066167

PATIENT
  Sex: Female

DRUGS (1)
  1. SUTENT [Suspect]
     Indication: NEOPLASM OF ORBIT

REACTIONS (3)
  - ANAEMIA [None]
  - METRORRHAGIA [None]
  - THROMBOCYTOPENIA [None]
